FAERS Safety Report 6956489-7 (Version None)
Quarter: 2010Q3

REPORT INFORMATION
  Report Type: 
  Country: None (occurrence: None)
  Receive Date: 20100830
  Receipt Date: 20100823
  Transmission Date: 20110219
  Serious: Yes (Disabling, Other)
  Sender: FDA-Public Use
  Company Number: US-BAYER-201013967BCC

PATIENT
  Age: 19 Year
  Sex: Female
  Weight: 48 kg

DRUGS (6)
  1. MIDOL MENSTRUAL COMPLETE CAPLETS [Suspect]
     Indication: DYSMENORRHOEA
     Dosage: UNIT DOSE: 1 DF
     Route: 048
     Dates: start: 20100116, end: 20100120
  2. MIDOL MENSTRUAL COMPLETE CAPLETS [Suspect]
     Dosage: UNIT DOSE: 1 DF
     Route: 048
     Dates: start: 20100325, end: 20100326
  3. MIDOL MENSTRUAL COMPLETE CAPLETS [Suspect]
     Dosage: UNIT DOSE: 1 DF
     Route: 048
     Dates: start: 20100221, end: 20100225
  4. TYLENOL-500 [Concomitant]
     Indication: DYSMENORRHOEA
     Dates: start: 20100401, end: 20100401
  5. LOESTRIN 24 FE [Concomitant]
     Route: 065
     Dates: start: 20100331
  6. IMODIUM [Concomitant]
     Route: 065
     Dates: start: 20100326

REACTIONS (8)
  - DECREASED APPETITE [None]
  - DEHYDRATION [None]
  - DIARRHOEA [None]
  - DIZZINESS [None]
  - DYSMENORRHOEA [None]
  - FATIGUE [None]
  - HYPOTENSION [None]
  - NAUSEA [None]
